FAERS Safety Report 4449347-3 (Version None)
Quarter: 2004Q3

REPORT INFORMATION
  Report Type: 
  Country: None (occurrence: None)
  Receive Date: 20040910
  Receipt Date: 20040826
  Transmission Date: 20050211
  Serious: Yes (Hospitalization)
  Sender: FDA-Public Use
  Company Number: 04P-163-0271680-00

PATIENT
  Age: 44 Year
  Sex: Male

DRUGS (2)
  1. DEPAKOTE [Suspect]
     Dates: end: 20040101
  2. CLOZAPINE [Suspect]
     Indication: SCHIZOPHRENIA
     Dosage: 1 IN 1 D, ORAL
     Route: 048
     Dates: start: 20040501, end: 20040801

REACTIONS (3)
  - GALLBLADDER DISORDER [None]
  - LEUKOPENIA [None]
  - PANCREATITIS [None]
